FAERS Safety Report 6394767-3 (Version None)
Quarter: 2009Q4

REPORT INFORMATION
  Report Type: 
  Country: None (occurrence: None)
  Receive Date: 20091009
  Receipt Date: 20090821
  Transmission Date: 20100525
  Serious: No
  Sender: FDA-Public Use
  Company Number: US-BAYER-200931135NA

PATIENT
  Age: 34 Year
  Sex: Female
  Weight: 48 kg

DRUGS (3)
  1. YAZ [Suspect]
     Indication: CONTRACEPTION
     Dosage: TOTAL DAILY DOSE: 1 DF  UNIT DOSE: 1 DF
     Dates: start: 20090806
  2. YAZ [Suspect]
     Dosage: UNIT DOSE: 1 DF
     Dates: start: 20090801
  3. XANAX [Concomitant]

REACTIONS (7)
  - ANXIETY [None]
  - CRYING [None]
  - MENSTRUATION IRREGULAR [None]
  - MOOD ALTERED [None]
  - MUSCULOSKELETAL DISCOMFORT [None]
  - VAGINAL HAEMORRHAGE [None]
  - WEIGHT DECREASED [None]
